FAERS Safety Report 19076993 (Version 2)
Quarter: 2022Q4

REPORT INFORMATION
  Report Type: Report from Study
  Country: EG (occurrence: EG)
  Receive Date: 20210331
  Receipt Date: 20221017
  Transmission Date: 20230113
  Serious: Yes (Other)
  Sender: FDA-Public Use
  Company Number: EG-NOVARTISPH-NVSC2021EG070191

PATIENT
  Age: 37 Year
  Sex: Male

DRUGS (4)
  1. COSENTYX [Suspect]
     Active Substance: SECUKINUMAB
     Indication: Psoriatic arthropathy
     Dosage: 300 MG (150 MG 2 PENS) FIRST DOSE
     Route: 058
     Dates: start: 20181115
  2. COSENTYX [Suspect]
     Active Substance: SECUKINUMAB
     Dosage: 300 MG (150 MG 2 PENS), Q2W
     Route: 058
     Dates: start: 201811
  3. COSENTYX [Suspect]
     Active Substance: SECUKINUMAB
     Dosage: 300 MG, Q3W (3 TIMES AS A LOADING DOSE)
     Route: 058
  4. COSENTYX [Suspect]
     Active Substance: SECUKINUMAB
     Dosage: 300 MG, QMO (MONTHLY AS A MAINTENANCE DOSE)
     Route: 058

REACTIONS (7)
  - Psoriasis [Recovered/Resolved]
  - Arthralgia [Recovered/Resolved]
  - Dizziness [Recovering/Resolving]
  - Symptom recurrence [Unknown]
  - Product availability issue [Unknown]
  - Product label issue [Unknown]
  - Inappropriate schedule of product administration [Recovering/Resolving]

NARRATIVE: CASE EVENT DATE: 20181115
